FAERS Safety Report 24731612 (Version 1)
Quarter: 2024Q4

REPORT INFORMATION
  Report Type: Spontaneous
  Country: IT (occurrence: IT)
  Receive Date: 20241213
  Receipt Date: 20241213
  Transmission Date: 20250114
  Serious: Yes (Death, Other)
  Sender: AMGEN
  Company Number: IT-ROCHE-3541332

PATIENT
  Age: 80 Year
  Sex: Male
  Weight: 75 kg

DRUGS (17)
  1. BEVACIZUMAB [Suspect]
     Active Substance: BEVACIZUMAB
     Indication: Hepatocellular carcinoma
     Dosage: START DATE OF MOST RECENT DOSE OF STUDY DRUG PRIOR TO AE IS 03-APR-2024600 MG WAS LAST ADMINISTERED
     Route: 040
     Dates: start: 20240403
  2. ATEZOLIZUMAB [Suspect]
     Active Substance: ATEZOLIZUMAB
     Indication: Hepatocellular carcinoma
     Dosage: DOSE LAST STUDY DRUG ADMIN PRIOR AE IS 1200 MG
     Route: 040
     Dates: start: 20240403
  3. TIRAGOLUMAB [Suspect]
     Active Substance: TIRAGOLUMAB
     Indication: Hepatocellular carcinoma
     Dosage: UNK, Q3WK (ON 03/APR/204, HE RECEIVED MOST RECENT DOSE OF STUDY DRUG.)
     Route: 040
     Dates: start: 20240403
  4. DAPAGLIFLOZIN [Concomitant]
     Active Substance: DAPAGLIFLOZIN
     Indication: Diabetes mellitus
     Dosage: 320 MILLIGRAM, QD
     Route: 048
     Dates: start: 2014
  5. SILODOSIN [Concomitant]
     Active Substance: SILODOSIN
     Indication: Benign prostatic hyperplasia
     Dosage: 4 MILLIGRAM, QD
     Route: 048
     Dates: start: 2018
  6. TAPAZOLE [Concomitant]
     Active Substance: METHIMAZOLE
     Indication: Hyperthyroidism
     Dosage: 5 MILLIGRAM, QD
     Route: 048
     Dates: start: 20240319
  7. AMIODARONE [Concomitant]
     Active Substance: AMIODARONE
     Indication: Atrial fibrillation
     Dosage: 200 MILLIGRAM, QD
     Route: 048
     Dates: start: 2012
  8. ALLOPURINOL [Concomitant]
     Active Substance: ALLOPURINOL
     Indication: Hyperuricaemia
     Dosage: 100 MILLIGRAM, QD
     Route: 048
     Dates: start: 2018
  9. ASPIRIN [Concomitant]
     Active Substance: ASPIRIN
     Indication: Atrial fibrillation
     Dosage: 100 MILLIGRAM, QD
     Route: 048
     Dates: start: 2012
  10. ATORVASTATIN [Concomitant]
     Active Substance: ATORVASTATIN
     Indication: Dyslipidaemia
     Dosage: 10 MILLIGRAM, QD
     Route: 048
     Dates: start: 2012
  11. LASIX [Concomitant]
     Active Substance: FUROSEMIDE
     Indication: Hypertension
     Dosage: 25 MILLIGRAM, QD
     Route: 048
     Dates: start: 2012, end: 20240828
  12. SITAGLIPTIN PHOSPHATE [Concomitant]
     Active Substance: SITAGLIPTIN PHOSPHATE
     Indication: Type 2 diabetes mellitus
     Dosage: 50 MILLIGRAM, QD
     Route: 048
     Dates: start: 2014
  13. ACETAMINOPHEN [Concomitant]
     Active Substance: ACETAMINOPHEN
     Indication: Hepatocellular carcinoma
     Dosage: FREQUENCY TEXT:AS PER  NEEDED
     Route: 048
     Dates: start: 2023
  14. METFORMIN [Concomitant]
     Active Substance: METFORMIN HYDROCHLORIDE
     Indication: Type 2 diabetes mellitus
     Dosage: 500 MILLIGRAM, QD
     Route: 048
     Dates: start: 2014
  15. VALSARTAN [Concomitant]
     Active Substance: VALSARTAN
     Indication: Hypertension
     Dosage: 320 MILLIGRAM, QD
     Route: 048
     Dates: start: 2012
  16. BISOPROLOL [Concomitant]
     Active Substance: BISOPROLOL
     Indication: Atrial fibrillation
     Dosage: 2.5 MILLIGRAM, QD
     Route: 048
     Dates: start: 2012
  17. TRAMADOL [Concomitant]
     Active Substance: TRAMADOL
     Dosage: GIVEN FOR PROPHYLAXIS- YES (AS NECESSARY)
     Route: 048
     Dates: start: 2023

REACTIONS (3)
  - Death [Fatal]
  - Infusion related reaction [Recovered/Resolved]
  - Off label use [Unknown]

NARRATIVE: CASE EVENT DATE: 20240403
